FAERS Safety Report 6162116-1 (Version None)
Quarter: 2009Q2

REPORT INFORMATION
  Report Type: 
  Country: None (occurrence: None)
  Receive Date: 20090417
  Receipt Date: 20090414
  Transmission Date: 20091009
  Serious: Yes (Other)
  Sender: FDA-Public Use
  Company Number: 2007SP021190

PATIENT
  Sex: Male
  Weight: 48 kg

DRUGS (14)
  1. TEMODAL [Suspect]
     Dosage: SEE IMAGE
     Route: 048
     Dates: start: 20061115, end: 20061119
  2. TEMODAL [Suspect]
     Dosage: SEE IMAGE
     Route: 048
     Dates: start: 20061212, end: 20061216
  3. TEMODAL [Suspect]
     Dosage: SEE IMAGE
     Route: 048
     Dates: start: 20070131, end: 20070204
  4. TEMODAL [Suspect]
     Dosage: SEE IMAGE
     Route: 048
     Dates: start: 20070328, end: 20070401
  5. TEMODAL [Suspect]
     Dosage: SEE IMAGE
     Route: 048
     Dates: start: 20070616, end: 20070620
  6. TEMODAL [Suspect]
     Dosage: SEE IMAGE
     Route: 048
     Dates: start: 20070728, end: 20070901
  7. TEMODAL [Suspect]
     Dosage: SEE IMAGE
     Route: 048
     Dates: start: 20071006, end: 20071010
  8. BAKTAR [Concomitant]
  9. GASTER [Concomitant]
  10. CEPHADOL [Concomitant]
  11. NAUZELIN [Concomitant]
  12. DECADRON [Concomitant]
  13. MAGNESIUM OXIDE [Concomitant]
  14. RAMOSETRON HYDROCHLORIDE) [Concomitant]

REACTIONS (3)
  - ALANINE AMINOTRANSFERASE INCREASED [None]
  - ASPARTATE AMINOTRANSFERASE INCREASED [None]
  - WHITE BLOOD CELL COUNT DECREASED [None]
